FAERS Safety Report 8320970-9 (Version None)
Quarter: 2012Q2

REPORT INFORMATION
  Report Type: 
  Country: None (occurrence: None)
  Receive Date: 20120430
  Receipt Date: 20120424
  Transmission Date: 20120825
  Serious: Yes (Hospitalization)
  Sender: FDA-Public Use
  Company Number: US-JNJFOC-20120411272

PATIENT
  Sex: Male

DRUGS (5)
  1. STELARA [Suspect]
     Route: 058
  2. STELARA [Suspect]
     Route: 058
  3. STELARA [Suspect]
     Indication: PRODUCT USED FOR UNKNOWN INDICATION
     Route: 058
  4. STELARA [Suspect]
     Route: 058
  5. STELARA [Suspect]
     Route: 058

REACTIONS (3)
  - MALAISE [None]
  - MYALGIA [None]
  - WHITE BLOOD CELL COUNT INCREASED [None]
